FAERS Safety Report 5211991-3 (Version None)
Quarter: 2007Q1

REPORT INFORMATION
  Report Type: 
  Country: None (occurrence: None)
  Receive Date: 20070118
  Receipt Date: 20070117
  Transmission Date: 20070707
  Serious: Yes (Hospitalization)
  Sender: FDA-Public Use
  Company Number: FR-GLAXOSMITHKLINE-B0453686A

PATIENT
  Age: 93 Year
  Sex: Female

DRUGS (6)
  1. AUGMENTIN '125' [Suspect]
     Route: 048
  2. LASIX [Concomitant]
     Indication: ESSENTIAL HYPERTENSION
     Route: 048
  3. LEVOTHYROXINE SODIUM [Concomitant]
     Indication: POST PROCEDURAL HYPOTHYROIDISM
     Route: 048
  4. PERINDOPRIL ERBUMINE [Concomitant]
     Route: 048
  5. INIPOMP [Concomitant]
     Indication: DIAPHRAGMATIC HERNIA
     Route: 048
  6. PLAVIX [Concomitant]
     Route: 048

REACTIONS (4)
  - HYPOCALCAEMIA [None]
  - HYPOMAGNESAEMIA [None]
  - IRON DEFICIENCY ANAEMIA [None]
  - PSEUDOMEMBRANOUS COLITIS [None]
